FAERS Safety Report 7158693-4 (Version None)
Quarter: 2010Q4

REPORT INFORMATION
  Report Type: 
  Country: None (occurrence: None)
  Receive Date: 20101214
  Receipt Date: 20101208
  Transmission Date: 20110411
  Serious: Yes (Hospitalization)
  Sender: FDA-Public Use
  Company Number: JP-GENZYME-CAMP-1001160

PATIENT
  Sex: Female
  Weight: 48.1 kg

DRUGS (6)
  1. CAMPATH [Suspect]
     Indication: CHRONIC LYMPHOCYTIC LEUKAEMIA
     Dosage: 3 MG, QD
     Route: 042
     Dates: start: 20100531, end: 20100531
  2. CAMPATH [Suspect]
     Dosage: 10 MG, QD
     Route: 042
     Dates: start: 20100601, end: 20100601
  3. CAMPATH [Suspect]
     Dosage: 30 MG, TIW
     Route: 042
     Dates: start: 20100602, end: 20100820
  4. SULFAMETHOXAZOLE W [Concomitant]
     Indication: INFECTION PROPHYLAXIS
     Dosage: 2 TAB, QD
     Route: 065
     Dates: start: 20100531
  5. ZOLEDRONIC ACID [Concomitant]
     Indication: HYPERCALCAEMIA
     Dosage: 4 MG, UNK
     Route: 065
     Dates: start: 20101129
  6. PREDNISOLONE [Concomitant]
     Indication: HYPERCALCAEMIA
     Dosage: 100 MG, UNK
     Route: 065
     Dates: start: 20101130

REACTIONS (3)
  - CHRONIC LYMPHOCYTIC LEUKAEMIA [None]
  - DECREASED APPETITE [None]
  - MALAISE [None]
